FAERS Safety Report 8050428-6 (Version None)
Quarter: 2012Q1

REPORT INFORMATION
  Report Type: 
  Country: None (occurrence: None)
  Receive Date: 20120117
  Receipt Date: 20120113
  Transmission Date: 20120608
  Serious: Yes (Hospitalization)
  Sender: FDA-Public Use
  Company Number: JP-B.I. PHARMACEUTICALS,INC./RIDGEFIELD-2012-BP-00777NB

PATIENT
  Age: 87 Year
  Sex: Female
  Weight: 43.7 kg

DRUGS (5)
  1. NORVASC [Concomitant]
     Route: 065
  2. PRADAXA [Suspect]
     Indication: ATRIAL FIBRILLATION
     Dosage: 220 MG
     Route: 048
     Dates: end: 20120112
  3. LIVALO [Concomitant]
     Route: 065
  4. CANDESARTAN CILEXETIL [Concomitant]
     Dosage: NR
     Route: 065
  5. SITAGLIPTIN PHOSPHATE [Concomitant]
     Route: 065

REACTIONS (2)
  - FEMORAL NECK FRACTURE [None]
  - MELAENA [None]
